FAERS Safety Report 4322397-3 (Version None)
Quarter: 2004Q1

REPORT INFORMATION
  Report Type: 
  Country: None (occurrence: None)
  Receive Date: 20040323
  Receipt Date: 20040323
  Transmission Date: 20041129
  Serious: Yes (Other)
  Sender: FDA-Public Use
  Company Number: None

PATIENT
  Age: 40 Year
  Sex: Male
  Weight: 70.3075 kg

DRUGS (1)
  1. SKIN RELIEF BODY WASH AVEENO/JOHNSON AND JOHNSON [Suspect]
     Dosage: TOPICAL
     Route: 061

REACTIONS (2)
  - ANXIETY [None]
  - DIZZINESS [None]
